FAERS Safety Report 21697134 (Version 1)
Quarter: 2022Q4

REPORT INFORMATION
  Report Type: Spontaneous
  Country: FR (occurrence: FR)
  Receive Date: 20221208
  Receipt Date: 20221208
  Transmission Date: 20230112
  Serious: Yes (Other)
  Sender: FDA-Public Use
  Company Number: FR-BAXTER-2022BAX026239

PATIENT
  Age: 84 Year
  Sex: Female

DRUGS (3)
  1. CYCLOPHOSPHAMIDE [Suspect]
     Active Substance: CYCLOPHOSPHAMIDE
     Indication: Product used for unknown indication
     Dosage: 300 MG/DOSE 1DOSE(S)/WEEK 2 WEEK(S)/CYCLE (TREATMENT LINE NUMBER 2, DURATION: 7.9 MONTHS)
     Route: 065
     Dates: end: 20180725
  2. BORTEZOMIB [Suspect]
     Active Substance: BORTEZOMIB
     Indication: Product used for unknown indication
     Dosage: (TREATMENT LINE NUMBER 2, DURATION: 7.9 MONTHS)
     Route: 065
     Dates: end: 20180725
  3. DEXAMETHASONE [Suspect]
     Active Substance: DEXAMETHASONE
     Indication: Product used for unknown indication
     Dosage: 20 MG/DOSE 1 DOSE(S)/WEEK (TREATMENT LINE NUMBER 2, DURATION: 7.9 MONTHS)
     Route: 065
     Dates: end: 20180725

REACTIONS (2)
  - Bone lesion [Unknown]
  - Anaemia [Unknown]
